FAERS Safety Report 5196495-9 (Version None)
Quarter: 2006Q4

REPORT INFORMATION
  Report Type: 
  Country: None (occurrence: None)
  Receive Date: 20061227
  Receipt Date: 20061218
  Transmission Date: 20070319
  Serious: Yes (Hospitalization)
  Sender: FDA-Public Use
  Company Number: 234011

PATIENT
  Age: 56 Year
  Sex: Female
  Weight: 90.5 kg

DRUGS (5)
  1. MABTHERA (RITUXIMAB) CONC FOR SOLUTION FOR INFUSION [Suspect]
     Indication: B-CELL LYMPHOMA
     Dosage: 712 MG, Q3W, INTRAVENOUS
     Route: 042
     Dates: start: 20060109
  2. VINCRISTINE [Suspect]
     Indication: B-CELL LYMPHOMA
     Dosage: 2 MG, Q3W, INTRAVENOUS
     Route: 042
     Dates: start: 20060109
  3. DOXORUBICIN HCL [Suspect]
     Indication: B-CELL LYMPHOMA
     Dosage: 90 MG, Q3W, INTRAVENOUS
     Route: 042
     Dates: start: 20060109
  4. CYCLOPHOSPHAMIDE [Suspect]
     Indication: B-CELL LYMPHOMA
     Dosage: 1500 MG, Q3W, INTRAVENOUS
     Route: 042
     Dates: start: 20060109
  5. PREDNISONE TAB [Suspect]
     Indication: B-CELL LYMPHOMA
     Dosage: 100 MG, Q3W, ORAL
     Route: 048
     Dates: start: 20060130

REACTIONS (4)
  - BLOOD POTASSIUM DECREASED [None]
  - NAUSEA [None]
  - ORAL INTAKE REDUCED [None]
  - VOMITING [None]
